FAERS Safety Report 13025657 (Version 1)
Quarter: 2016Q4

REPORT INFORMATION
  Report Type: Other
  Country: JP (occurrence: JP)
  Receive Date: 20161214
  Receipt Date: 20161214
  Transmission Date: 20170207
  Serious: Yes (Hospitalization)
  Sender: FDA-Public Use
  Company Number: JP-LUPIN PHARMACEUTICALS INC.-2016-05476

PATIENT
  Age: 47 Year
  Sex: Female

DRUGS (3)
  1. RISPERIDONE. [Interacting]
     Active Substance: RISPERIDONE
     Indication: SCHIZOPHRENIA
     Route: 065
  2. QUETIAPINE. [Suspect]
     Active Substance: QUETIAPINE
     Indication: SCHIZOPHRENIA
     Route: 065
  3. TERBINAFINE. [Interacting]
     Active Substance: TERBINAFINE
     Indication: TINEA PEDIS
     Route: 065

REACTIONS (2)
  - Neuroleptic malignant syndrome [Recovering/Resolving]
  - Drug interaction [Unknown]
